FAERS Safety Report 17282910 (Version 2)
Quarter: 2020Q1

REPORT INFORMATION
  Report Type: Report from Study
  Country: US (occurrence: US)
  Receive Date: 20200117
  Receipt Date: 20200129
  Transmission Date: 20200409
  Serious: No
  Sender: FDA-Public Use
  Company Number: US-009507513-2001USA005402

PATIENT
  Age: 77 Year
  Sex: Female

DRUGS (1)
  1. JANUVIA [Suspect]
     Active Substance: SITAGLIPTIN PHOSPHATE
     Route: 048

REACTIONS (3)
  - Asthenia [Not Recovered/Not Resolved]
  - Dizziness [Not Recovered/Not Resolved]
  - Product dose omission [Unknown]

NARRATIVE: CASE EVENT DATE: 202001
